FAERS Safety Report 10207396 (Version 1)
Quarter: 2014Q2

REPORT INFORMATION
  Report Type: Spontaneous
  Country: US (occurrence: US)
  Receive Date: 20140530
  Receipt Date: 20140530
  Transmission Date: 20141212
  Serious: No
  Sender: FDA-Public Use
  Company Number: US-GLAXOSMITHKLINE-A1040269A

PATIENT
  Age: 33 Year
  Sex: Female

DRUGS (2)
  1. VENTOLIN [Suspect]
     Indication: ASTHMA
     Dosage: 2SPR AS REQUIRED
     Route: 055
  2. QVAR [Concomitant]

REACTIONS (2)
  - Nasopharyngitis [Recovering/Resolving]
  - Overdose [Unknown]
